FAERS Safety Report 6842939-3 (Version None)
Quarter: 2010Q3

REPORT INFORMATION
  Report Type: 
  Country: None (occurrence: None)
  Receive Date: 20100714
  Receipt Date: 20070808
  Transmission Date: 20110219
  Serious: No
  Sender: FDA-Public Use
  Company Number: US-PFIZER INC-2007066846

PATIENT
  Sex: Female
  Weight: 55.8 kg

DRUGS (4)
  1. CHANTIX [Suspect]
     Indication: SMOKING CESSATION THERAPY
     Dates: start: 20070801
  2. ZETIA [Concomitant]
  3. ZOCOR [Concomitant]
  4. FERROUS SULFATE TAB [Concomitant]

REACTIONS (4)
  - ARTHRALGIA [None]
  - DRY MOUTH [None]
  - MALAISE [None]
  - NAUSEA [None]
